FAERS Safety Report 4741923-3 (Version None)
Quarter: 2005Q3

REPORT INFORMATION
  Report Type: 
  Country: None (occurrence: None)
  Receive Date: 20050801
  Receipt Date: 20050615
  Transmission Date: 20060218
  Serious: No
  Sender: FDA-Public Use
  Company Number: 2005PV000063

PATIENT
  Age: 66 Year
  Sex: Female
  Weight: 104.3273 kg

DRUGS (14)
  1. BYETTA [Suspect]
     Indication: DIABETES MELLITUS NON-INSULIN-DEPENDENT
     Dosage: 5 UG;BID;SC
     Route: 058
     Dates: start: 20050615
  2. ACTOS [Concomitant]
  3. GLUCOVANCE [Concomitant]
  4. LANTUS [Concomitant]
  5. HUMALOG [Concomitant]
  6. SPIRONOLACTONE [Concomitant]
  7. HYDROCHLOROTHIAZIDE [Concomitant]
  8. PREMARIN [Concomitant]
  9. BENICAR [Concomitant]
  10. CRESTOR [Concomitant]
  11. ASPIRIN [Concomitant]
  12. ZETIA [Concomitant]
  13. ATENOLOL [Concomitant]
  14. DEMADEX [Concomitant]

REACTIONS (2)
  - BLOOD GLUCOSE DECREASED [None]
  - VISION BLURRED [None]
